FAERS Safety Report 7546078-8 (Version None)
Quarter: 2011Q2

REPORT INFORMATION
  Report Type: 
  Country: None (occurrence: None)
  Receive Date: 20110614
  Receipt Date: 20110602
  Transmission Date: 20111010
  Serious: Yes (Other)
  Sender: FDA-Public Use
  Company Number: PHHY2010BR89092

PATIENT
  Sex: Female

DRUGS (2)
  1. DIOVAN HCT [Suspect]
     Dosage: VALSARTAN 320MG AND HYDROCHLOROTIAZIDE 12.5MG
     Route: 048
  2. DIOVAN HCT [Suspect]
     Dosage: VALSARTAN 80MG AND HYDROCHLOROTIAZIDE 12.5MG
     Route: 048

REACTIONS (3)
  - HYPERTENSION [None]
  - MALAISE [None]
  - VIITH NERVE PARALYSIS [None]
